FAERS Safety Report 5436502-9 (Version None)
Quarter: 2007Q3

REPORT INFORMATION
  Report Type: 
  Country: None (occurrence: None)
  Receive Date: 20070831
  Receipt Date: 20070824
  Transmission Date: 20080115
  Serious: Yes (Other)
  Sender: FDA-Public Use
  Company Number: CA-ASTRAZENECA-2007UW20495

PATIENT
  Age: 67 Year
  Sex: Female

DRUGS (6)
  1. CRESTOR [Suspect]
     Indication: BLOOD CHOLESTEROL INCREASED
     Route: 048
  2. CRESTOR [Suspect]
     Route: 048
     Dates: start: 20070401
  3. NITROGLYCERIN [Concomitant]
  4. TIAZAC [Concomitant]
  5. APO-TRIAZIDE [Concomitant]
  6. SYNTHROID [Concomitant]

REACTIONS (5)
  - ANGINA PECTORIS [None]
  - DIZZINESS [None]
  - DYSPHAGIA [None]
  - INFARCTION [None]
  - PAIN IN EXTREMITY [None]
